FAERS Safety Report 9270631 (Version 3)
Quarter: 2013Q2

REPORT INFORMATION
  Report Type: Spontaneous
  Country: JP (occurrence: JP)
  Receive Date: 20130506
  Receipt Date: 20130607
  Transmission Date: 20140414
  Serious: Yes (Hospitalization)
  Sender: FDA-Public Use
  Company Number: JP-AMGEN-JPNSP2013030581

PATIENT
  Age: 64 Year
  Sex: Female

DRUGS (6)
  1. ARANESP [Suspect]
     Indication: NEPHROGENIC ANAEMIA
     Dosage: 120 MG, UNK
     Route: 040
  2. MIMPARA [Concomitant]
     Dosage: UNK
     Route: 048
  3. PHOSBLOCK [Concomitant]
     Dosage: UNK
     Route: 048
  4. TAKEPRON [Concomitant]
     Dosage: UNK
     Route: 048
  5. FEBURIC [Concomitant]
     Dosage: UNK
     Route: 048
  6. ROCALTROL [Concomitant]
     Dosage: UNK
     Route: 048

REACTIONS (1)
  - Aplasia pure red cell [Not Recovered/Not Resolved]
